FAERS Safety Report 7421188 (Version 4)
Quarter: 2018Q2

REPORT INFORMATION
  Report Type: Spontaneous
  Country: US (occurrence: US)
  Receive Date: 20100616
  Receipt Date: 20180413
  Transmission Date: 20180711
  Serious: Yes (Hospitalization, Other)
  Sender: FDA-Public Use
  Company Number: US-ASTRAZENECA-2009SE13196

PATIENT
  Age: 742 Month
  Sex: Female
  Weight: 102.1 kg

DRUGS (7)
  1. BENADRYL [Concomitant]
     Active Substance: DIPHENHYDRAMINE HYDROCHLORIDE
     Indication: PRURITUS
     Dosage: DAILY
  2. ATACAND [Suspect]
     Active Substance: CANDESARTAN CILEXETIL
     Indication: HYPERTENSION
     Route: 048
     Dates: start: 20090825
  3. BYDUREON BCISE [Suspect]
     Active Substance: EXENATIDE
     Indication: TYPE 2 DIABETES MELLITUS
     Route: 058
     Dates: start: 20180317
  4. BYDUREON [Suspect]
     Active Substance: EXENATIDE
     Indication: TYPE 2 DIABETES MELLITUS
     Route: 058
     Dates: start: 2012
  5. FUROSEMIDE. [Concomitant]
     Active Substance: FUROSEMIDE
  6. FLUCONAZOLE. [Concomitant]
     Active Substance: FLUCONAZOLE
     Indication: FUNGAL INFECTION
     Dosage: 150 MG, EVERY 5 DAYS
  7. MACROBID [Concomitant]
     Active Substance: NITROFURANTOIN\NITROFURANTOIN MONOHYDRATE
     Indication: URINARY TRACT INFECTION

REACTIONS (16)
  - Escherichia infection [Unknown]
  - Blood glucose increased [Unknown]
  - Intentional product misuse [Unknown]
  - Insomnia [Unknown]
  - Visual impairment [Unknown]
  - Unevaluable event [Unknown]
  - Sepsis [Unknown]
  - Renal injury [Unknown]
  - Urinary tract infection [Not Recovered/Not Resolved]
  - Oedema peripheral [Unknown]
  - Vision blurred [Not Recovered/Not Resolved]
  - Nephrolithiasis [Unknown]
  - Enterocolitis [Unknown]
  - Type 2 diabetes mellitus [Unknown]
  - Wrong technique in device usage process [Unknown]
  - Device malfunction [Unknown]

NARRATIVE: CASE EVENT DATE: 200907
